FAERS Safety Report 26096825 (Version 2)
Quarter: 2025Q4

REPORT INFORMATION
  Report Type: Report from Study
  Country: US (occurrence: US)
  Receive Date: 20251127
  Receipt Date: 20251222
  Transmission Date: 20260117
  Serious: No
  Sender: BOEHRINGER INGELHEIM
  Company Number: US-BoehringerIngelheim-2025-BI-110450

PATIENT
  Age: 74 Year
  Sex: Male

DRUGS (13)
  1. OFEV [Suspect]
     Active Substance: NINTEDANIB
     Indication: Pulmonary fibrosis
  2. OFEV [Suspect]
     Active Substance: NINTEDANIB
  3. JASCAYD [Suspect]
     Active Substance: NERANDOMILAST
     Indication: Product used for unknown indication
     Dates: start: 20250111
  4. ZYRTEC [Concomitant]
     Active Substance: CETIRIZINE HYDROCHLORIDE
     Indication: Product used for unknown indication
     Dosage: 10MG ONCE A DAY
  5. NEXIUM [Concomitant]
     Active Substance: ESOMEPRAZOLE MAGNESIUM
     Indication: Product used for unknown indication
     Dosage: 40MG ONCE A DAY
  6. PROSCAR [Concomitant]
     Active Substance: FINASTERIDE
     Indication: Product used for unknown indication
     Dosage: 5MG IN THE MORNING
  7. ATIVAN [Concomitant]
     Active Substance: LORAZEPAM
     Indication: Anxiety
     Dosage: AS NEEDED
  8. PREDNISONE [Concomitant]
     Active Substance: PREDNISONE
     Indication: Product used for unknown indication
     Dosage: 10MG
  9. QUETIAPINE [Concomitant]
     Active Substance: QUETIAPINE
     Indication: Product used for unknown indication
     Dosage: 50MG TWICE A DAY
  10. ZOLOFT [Concomitant]
     Active Substance: SERTRALINE HYDROCHLORIDE
     Indication: Product used for unknown indication
     Dosage: 50MG IN THE MORNING
  11. FLOMAX [Concomitant]
     Active Substance: TAMSULOSIN HYDROCHLORIDE
     Indication: Product used for unknown indication
     Dosage: 0.4MG AT NIGHT
  12. TRAMADOL [Concomitant]
     Active Substance: TRAMADOL
     Indication: Product used for unknown indication
     Dosage: ONE IN THE MORNING AND ONE AT NIGHT
  13. gabaoentin [Concomitant]
     Indication: Product used for unknown indication
     Dosage: 300MG IN THE MORNING AND THE EVENING

REACTIONS (13)
  - Weight increased [Recovered/Resolved]
  - Weight decreased [Recovered/Resolved]
  - Diarrhoea [Recovered/Resolved]
  - Ear pain [Not Recovered/Not Resolved]
  - Constipation [Not Recovered/Not Resolved]
  - Dizziness [Not Recovered/Not Resolved]
  - Arthralgia [Not Recovered/Not Resolved]
  - Visual impairment [Not Recovered/Not Resolved]
  - Cough [Not Recovered/Not Resolved]
  - Nasopharyngitis [Not Recovered/Not Resolved]
  - Memory impairment [Not Recovered/Not Resolved]
  - Blood pressure decreased [Not Recovered/Not Resolved]
  - Feeling abnormal [Not Recovered/Not Resolved]

NARRATIVE: CASE EVENT DATE: 20230101
